FAERS Safety Report 5506901-5 (Version None)
Quarter: 2007Q4

REPORT INFORMATION
  Report Type: 
  Country: None (occurrence: None)
  Receive Date: 20071105
  Receipt Date: 20071024
  Transmission Date: 20080405
  Serious: Yes (Death, Other)
  Sender: FDA-Public Use
  Company Number: US-PFIZER INC-2007090775

PATIENT
  Age: 17 Year
  Sex: Female

DRUGS (1)
  1. DILANTIN [Suspect]

REACTIONS (4)
  - COLITIS [None]
  - ERYTHEMA MULTIFORME [None]
  - MULTI-ORGAN FAILURE [None]
  - STEVENS-JOHNSON SYNDROME [None]
